FAERS Safety Report 8483761-4 (Version None)
Quarter: 2012Q3

REPORT INFORMATION
  Report Type: 
  Country: None (occurrence: None)
  Receive Date: 20120703
  Receipt Date: 20120627
  Transmission Date: 20120928
  Serious: Yes (Hospitalization)
  Sender: FDA-Public Use
  Company Number: US-BIOGENIDEC-2012BI022919

PATIENT
  Age: 46 Year
  Sex: Female

DRUGS (2)
  1. AVONEX [Suspect]
     Indication: MULTIPLE SCLEROSIS
     Route: 030
     Dates: start: 20001124
  2. AVONEX [Suspect]
     Route: 030
     Dates: start: 20091216

REACTIONS (3)
  - ABASIA [None]
  - LUMBAR PUNCTURE [None]
  - AMNESIA [None]
